FAERS Safety Report 13752489 (Version 1)
Quarter: 2017Q3

REPORT INFORMATION
  Report Type: Report from Study
  Country: None (occurrence: CN)
  Receive Date: 20170713
  Receipt Date: 20170713
  Transmission Date: 20171127
  Serious: Yes (Hospitalization)
  Sender: FDA-Public Use
  Company Number: CN-ABBVIE-17P-035-2030002-00

PATIENT
  Age: 23 Year
  Sex: Female
  Weight: 44 kg

DRUGS (4)
  1. BIFICO [Concomitant]
     Indication: CROHN^S DISEASE
     Route: 048
     Dates: start: 20161024
  2. HUMIRA [Suspect]
     Active Substance: ADALIMUMAB
     Indication: CROHN^S DISEASE
     Route: 058
     Dates: start: 20170228, end: 20170620
  3. CALTRATE [Concomitant]
     Active Substance: CALCIUM CARBONATE
     Indication: CROHN^S DISEASE
     Route: 048
     Dates: start: 20160921
  4. BIFICO [Concomitant]
     Route: 048
     Dates: start: 20160921, end: 20161023

REACTIONS (1)
  - Crohn^s disease [Recovered/Resolved]

NARRATIVE: CASE EVENT DATE: 20170623
